FAERS Safety Report 12170784 (Version 2)
Quarter: 2016Q1

REPORT INFORMATION
  Report Type: Report from Study
  Country: US (occurrence: US)
  Receive Date: 20160311
  Receipt Date: 20160324
  Transmission Date: 20160526
  Serious: Yes (Death, Other)
  Sender: FDA-Public Use
  Company Number: US-GILEAD-2016-0202716

PATIENT
  Age: 66 Year
  Sex: Female

DRUGS (2)
  1. AMBRISENTAN [Suspect]
     Active Substance: AMBRISENTAN
     Indication: PRODUCT USED FOR UNKNOWN INDICATION
     Dosage: 5 MG, QD
     Route: 065
     Dates: start: 20160218
  2. ORENITRAM [Concomitant]
     Active Substance: TREPROSTINIL

REACTIONS (4)
  - Oxygen saturation abnormal [Unknown]
  - Dyspnoea [Unknown]
  - Swelling [Unknown]
  - Death [Fatal]

NARRATIVE: CASE EVENT DATE: 20160317
